FAERS Safety Report 17801198 (Version 2)
Quarter: 2020Q2

REPORT INFORMATION
  Report Type: Spontaneous
  Country: DE (occurrence: DE)
  Receive Date: 20200519
  Receipt Date: 20200603
  Transmission Date: 20200714
  Serious: Yes (Death, Hospitalization, Other)
  Sender: FDA-Public Use
  Company Number: DE-DRREDDYS-USA/GER/20/0123071

PATIENT
  Age: 38 Year
  Sex: Female

DRUGS (3)
  1. METOPROLOL SUCCINATE. [Suspect]
     Active Substance: METOPROLOL SUCCINATE
     Indication: HYPERTENSION
     Route: 065
  2. FENTANYL. [Suspect]
     Active Substance: FENTANYL
     Indication: PRODUCT USED FOR UNKNOWN INDICATION
     Dosage: 419 UG/H PATCHES
     Route: 062
  3. LORAZEPAM. [Suspect]
     Active Substance: LORAZEPAM
     Indication: PRODUCT USED FOR UNKNOWN INDICATION
     Route: 065

REACTIONS (19)
  - Cardiac arrest [Fatal]
  - Electrocardiogram ST segment elevation [Unknown]
  - Embolic cerebral infarction [Unknown]
  - Coma [Unknown]
  - Suicide attempt [Fatal]
  - Blood glucose increased [Unknown]
  - Hyperkalaemia [Unknown]
  - Ventricular tachycardia [Unknown]
  - Bundle branch block left [Unknown]
  - Overdose [Fatal]
  - Respiratory failure [Fatal]
  - Coronary artery occlusion [Unknown]
  - Toxicity to various agents [Fatal]
  - Metabolic acidosis [Unknown]
  - Circulatory collapse [Fatal]
  - Myocardial infarction [Unknown]
  - Vasoconstriction [Unknown]
  - Cerebral ischaemia [Unknown]
  - Pulseless electrical activity [Unknown]
